FAERS Safety Report 6814087-X (Version None)
Quarter: 2010Q3

REPORT INFORMATION
  Report Type: 
  Country: None (occurrence: None)
  Receive Date: 20100702
  Receipt Date: 20100106
  Transmission Date: 20110219
  Serious: Yes (Life-Threatening, Disabling, Other)
  Sender: FDA-Public Use
  Company Number: A0797526A

PATIENT
  Age: 57 Year
  Sex: Female
  Weight: 88.6 kg

DRUGS (8)
  1. ADVAIR DISKUS 100/50 [Suspect]
     Indication: ASTHMA
     Dosage: 2PUFF TWICE PER DAY
     Route: 055
     Dates: start: 20080101
  2. VENTOLIN HFA [Concomitant]
     Route: 055
  3. ZYFLO [Concomitant]
     Dosage: 600MG TWICE PER DAY
     Route: 048
  4. OXYBUTYNIN CHLORIDE [Concomitant]
     Dosage: 15MG PER DAY
     Route: 048
  5. PROTONIX [Concomitant]
     Dosage: 40MG PER DAY
     Route: 048
  6. SYNTHROID [Concomitant]
     Dosage: .15MG PER DAY
     Route: 048
  7. CALCIUM CARBONATE [Concomitant]
     Dosage: 1200MG PER DAY
     Route: 048
  8. EPINEPHRINE [Concomitant]

REACTIONS (6)
  - ASTHMA [None]
  - CANDIDIASIS [None]
  - DRUG INEFFECTIVE [None]
  - DYSPHONIA [None]
  - DYSPNOEA [None]
  - PRODUCT QUALITY ISSUE [None]
